FAERS Safety Report 15977926 (Version 1)
Quarter: 2019Q1

REPORT INFORMATION
  Report Type: Spontaneous
  Country: GB (occurrence: GB)
  Receive Date: 20190218
  Receipt Date: 20190218
  Transmission Date: 20190418
  Serious: Yes (Life-Threatening, Hospitalization, Other)
  Sender: FDA-Public Use
  Company Number: GB-BRISTOL-MYERS SQUIBB COMPANY-BMS-2019-015264

PATIENT
  Age: 54 Year
  Sex: Female

DRUGS (1)
  1. ELIQUIS [Suspect]
     Active Substance: APIXABAN
     Indication: ARTERIAL THROMBOSIS
     Dosage: 10 MG, 1 DAY
     Route: 048
     Dates: start: 20181121, end: 20190129

REACTIONS (2)
  - Embolism venous [Recovering/Resolving]
  - Vascular stent thrombosis [Recovering/Resolving]

NARRATIVE: CASE EVENT DATE: 201901
